FAERS Safety Report 8290980-9 (Version None)
Quarter: 2012Q2

REPORT INFORMATION
  Report Type: 
  Country: None (occurrence: None)
  Receive Date: 20120417
  Receipt Date: 20110323
  Transmission Date: 20120825
  Serious: No
  Sender: FDA-Public Use
  Company Number: US-ASTRAZENECA-2011SE12149

PATIENT
  Age: 71 Year
  Sex: Female

DRUGS (10)
  1. NEXIUM [Suspect]
     Route: 048
  2. VITAMIN TAB [Concomitant]
  3. OMEPRAZOLE [Suspect]
     Route: 048
  4. SIMVASTATIN [Concomitant]
  5. NITROGLYCERIN SR [Concomitant]
  6. SYNTHROID [Concomitant]
  7. ASPIRIN [Concomitant]
  8. MAGNESIUM HYDROXIDE TAB [Concomitant]
  9. CALCIUM CARBONATE [Concomitant]
  10. LORAZEPAM [Concomitant]

REACTIONS (4)
  - DYSPNOEA [None]
  - DRUG INEFFECTIVE [None]
  - GASTROOESOPHAGEAL REFLUX DISEASE [None]
  - DRUG DOSE OMISSION [None]
